FAERS Safety Report 10878446 (Version 1)
Quarter: 2015Q1

REPORT INFORMATION
  Report Type: Spontaneous
  Country: US (occurrence: US)
  Receive Date: 20150302
  Receipt Date: 20150302
  Transmission Date: 20150721
  Serious: No
  Sender: FDA-Public Use
  Company Number: US-ABBVIE-14P-163-1261709-00

PATIENT
  Age: 68 Year
  Sex: Male
  Weight: 90.8 kg

DRUGS (2)
  1. SIMVASTATIN. [Concomitant]
     Active Substance: SIMVASTATIN
     Indication: BLOOD CHOLESTEROL INCREASED
  2. ANDROGEL [Suspect]
     Active Substance: TESTOSTERONE
     Indication: BLOOD TESTOSTERONE DECREASED
     Route: 061
     Dates: start: 201212, end: 201302

REACTIONS (2)
  - Dysuria [Recovered/Resolved]
  - Prostatomegaly [Recovered/Resolved]

NARRATIVE: CASE EVENT DATE: 201301
